FAERS Safety Report 25511506 (Version 1)
Quarter: 2025Q3

REPORT INFORMATION
  Report Type: Spontaneous
  Country: US (occurrence: US)
  Receive Date: 20250703
  Receipt Date: 20250703
  Transmission Date: 20251021
  Serious: No
  Sender: UPSHER SMITH LABORATORIES
  Company Number: US-UPSHER-SMITH LABORATORIES, LLC-20250100306

PATIENT
  Sex: Female
  Weight: 11.111 kg

DRUGS (1)
  1. VIGADRONE [Suspect]
     Active Substance: VIGABATRIN
     Indication: Infantile spasms
     Route: 048
     Dates: start: 20221022

REACTIONS (6)
  - Tongue movement disturbance [Recovered/Resolved]
  - Weight fluctuation [Recovered/Resolved]
  - Gastrointestinal disorder [Recovered/Resolved]
  - Hypotonia [Recovered/Resolved]
  - Incorrect dose administered [Unknown]
  - Wrong technique in product usage process [Unknown]
